FAERS Safety Report 26190850 (Version 1)
Quarter: 2025Q4

REPORT INFORMATION
  Report Type: Report from Study
  Country: GB (occurrence: GB)
  Receive Date: 20251223
  Receipt Date: 20251223
  Transmission Date: 20260118
  Serious: Yes (Hospitalization)
  Sender: LEO PHARM
  Company Number: GB-LEO Pharma-383278

PATIENT
  Age: 84 Year
  Sex: Male

DRUGS (2)
  1. ADBRY [Suspect]
     Active Substance: TRALOKINUMAB-LDRM
     Indication: Dermatitis atopic
     Dosage: 2X300MG AT WEEK 0
     Route: 058
     Dates: start: 20250903
  2. ADBRY [Suspect]
     Active Substance: TRALOKINUMAB-LDRM
     Indication: Dermatitis atopic
     Dosage: TEMPORARILY DISCONTINUED
     Route: 058

REACTIONS (9)
  - Heart rate increased [Not Recovered/Not Resolved]
  - Malaise [Not Recovered/Not Resolved]
  - Chest discomfort [Not Recovered/Not Resolved]
  - Dyspnoea [Not Recovered/Not Resolved]
  - Chest pain [Not Recovered/Not Resolved]
  - Dyspnoea exertional [Not Recovered/Not Resolved]
  - Panic disorder [Not Recovered/Not Resolved]
  - Tremor [Not Recovered/Not Resolved]
  - Bladder disorder [Not Recovered/Not Resolved]
